FAERS Safety Report 6935058-9 (Version None)
Quarter: 2010Q3

REPORT INFORMATION
  Report Type: 
  Country: None (occurrence: None)
  Receive Date: 20100822
  Receipt Date: 20100811
  Transmission Date: 20110219
  Serious: Yes (Hospitalization)
  Sender: FDA-Public Use
  Company Number: PHHO2010CH12135

PATIENT
  Sex: Male

DRUGS (8)
  1. AFINITOR [Suspect]
     Indication: PROSTATE CANCER
     Dosage: 10 MG, DAILY
     Route: 048
     Dates: start: 20091216, end: 20100730
  2. MARCUMAR [Concomitant]
  3. MORPHINE [Concomitant]
  4. OXYCONTIN [Concomitant]
  5. CODEINE [Concomitant]
  6. SPIRICORT [Concomitant]
  7. PANADOL [Concomitant]
  8. NOVALGIN [Concomitant]

REACTIONS (5)
  - ACUTE CORONARY SYNDROME [None]
  - CHEST PAIN [None]
  - DYSPNOEA [None]
  - PLEURAL EFFUSION [None]
  - THORACIC CAVITY DRAINAGE [None]
